FAERS Safety Report 18156957 (Version 2)
Quarter: 2020Q3

REPORT INFORMATION
  Report Type: Spontaneous
  Country: GB (occurrence: GB)
  Receive Date: 20200817
  Receipt Date: 20200903
  Transmission Date: 20201103
  Serious: Yes (Hospitalization, Other)
  Sender: FDA-Public Use
  Company Number: GB-MICRO LABS LIMITED-ML2020-02392

PATIENT
  Age: 47 Year
  Sex: Female
  Weight: 83 kg

DRUGS (5)
  1. ASDA FRUIT FLAVOURED ANTACID TABLETS [Interacting]
     Active Substance: CALCIUM CARBONATE
     Indication: DYSPEPSIA
     Dosage: INGESTING UP TO NINE TABLETS OF CALCIUM CARBONATE (4,500 MG IN TOTAL) EVERY DAY FOR 2 YEARS.
     Route: 048
     Dates: start: 2017, end: 20190315
  2. BUPRENORPHINE ? TRANSDERMAL PATCH [Concomitant]
     Route: 062
  3. SIMVASTATIN. [Concomitant]
     Active Substance: SIMVASTATIN
  4. PARACETAMOL [Concomitant]
     Active Substance: ACETAMINOPHEN
  5. LOSARTAN. [Suspect]
     Active Substance: LOSARTAN
     Indication: HYPERTENSION
     Dates: start: 2014

REACTIONS (9)
  - Prescription drug used without a prescription [Recovered/Resolved]
  - Milk-alkali syndrome [Recovered/Resolved]
  - Drug interaction [Recovered/Resolved]
  - Nephrolithiasis [Recovered/Resolved]
  - Condition aggravated [Recovered/Resolved]
  - Renal impairment [Recovering/Resolving]
  - Vitamin D deficiency [Recovered/Resolved]
  - Hypercalcaemia [Recovered/Resolved]
  - Intentional overdose [Recovered/Resolved]

NARRATIVE: CASE EVENT DATE: 2019
